FAERS Safety Report 24237309 (Version 1)
Quarter: 2024Q3

REPORT INFORMATION
  Report Type: Report from Study
  Country: IN (occurrence: IN)
  Receive Date: 20240822
  Receipt Date: 20240822
  Transmission Date: 20241017
  Serious: Yes (Hospitalization)
  Sender: PFIZER
  Company Number: IN-TAKEDA-2024TUS014610

PATIENT
  Age: 59 Year
  Sex: Male

DRUGS (4)
  1. BRENTUXIMAB VEDOTIN [Suspect]
     Active Substance: BRENTUXIMAB VEDOTIN
     Indication: Anaplastic large cell lymphoma T- and null-cell types recurrent
     Dosage: 150 MILLIGRAM
     Route: 042
     Dates: start: 20240125
  2. BRENTUXIMAB VEDOTIN [Suspect]
     Active Substance: BRENTUXIMAB VEDOTIN
     Dosage: 150 MILLIGRAM
     Route: 042
  3. BRENTUXIMAB VEDOTIN [Suspect]
     Active Substance: BRENTUXIMAB VEDOTIN
     Dosage: 100 MILLIGRAM
     Route: 042
     Dates: start: 20240427
  4. BRENTUXIMAB VEDOTIN [Suspect]
     Active Substance: BRENTUXIMAB VEDOTIN
     Dosage: 150 MG
     Route: 042

REACTIONS (2)
  - Pancreatic disorder [Recovered/Resolved]
  - Inappropriate schedule of product administration [Unknown]
